FAERS Safety Report 10224108 (Version 1)
Quarter: 2014Q2

REPORT INFORMATION
  Report Type: Spontaneous
  Country: US (occurrence: US)
  Receive Date: 20140609
  Receipt Date: 20140609
  Transmission Date: 20141212
  Serious: Yes (Other)
  Sender: FDA-Public Use
  Company Number: CHPA2014US007791

PATIENT
  Age: 92 Year
  Sex: Female

DRUGS (1)
  1. GAS-X EXTRA STRENGTH SOFTGELS [Suspect]
     Dosage: UNK
     Route: 048

REACTIONS (3)
  - Neoplasm malignant [Recovered/Resolved]
  - Fall [Unknown]
  - Hypoacusis [Not Recovered/Not Resolved]
